FAERS Safety Report 9984746 (Version 2)
Quarter: 2014Q1

REPORT INFORMATION
  Report Type: Spontaneous
  Country: BR (occurrence: BR)
  Receive Date: 20140307
  Receipt Date: 20140307
  Transmission Date: 20141002
  Serious: Yes (Hospitalization)
  Sender: FDA-Public Use
  Company Number: BR-009507513-1207BRA007483

PATIENT
  Sex: Female
  Weight: 62 kg

DRUGS (1)
  1. NUVARING [Suspect]
     Indication: CONTRACEPTION
     Dosage: UNK UNK, CYCLICAL
     Route: 067
     Dates: start: 2011

REACTIONS (4)
  - Liposuction [Recovered/Resolved]
  - Device expulsion [Not Recovered/Not Resolved]
  - Panic disorder [Recovered/Resolved]
  - Flatulence [Not Recovered/Not Resolved]
